FAERS Safety Report 8850489 (Version 2)
Quarter: 2012Q4

REPORT INFORMATION
  Report Type: Report from Study
  Country: US (occurrence: US)
  Receive Date: 20121019
  Receipt Date: 20121203
  Transmission Date: 20130627
  Serious: Yes (Hospitalization)
  Sender: FDA-Public Use
  Company Number: US-ROCHE-1142618

PATIENT
  Sex: Female

DRUGS (17)
  1. TRASTUZUMAB [Suspect]
     Indication: BREAST CANCER
     Route: 065
     Dates: start: 20120813
  2. TRASTUZUMAB [Suspect]
     Dosage: Date of last dose prior to SAE: 25/Sep/2012
     Route: 065
  3. PERTUZUMAB [Suspect]
     Indication: BREAST CANCER
     Dosage: loading dose
     Route: 065
     Dates: start: 20120813
  4. PERTUZUMAB [Suspect]
     Dosage: Date of last dose prior to SAE: 25/Sep/2012, maintenance dose
     Route: 065
  5. PACLITAXEL [Suspect]
     Indication: BREAST CANCER
     Dosage: Date of last dose prior to SAE: 09/Oct/2012
     Route: 065
     Dates: start: 20120813
  6. CIMICIFUGA RACEMOSA [Concomitant]
     Route: 065
     Dates: start: 20120813
  7. ESOMEPRAZOLE MAGNESIUM [Concomitant]
     Route: 065
     Dates: start: 20120813
  8. FISH OIL [Concomitant]
     Route: 065
     Dates: start: 20120813
  9. LABETALOL [Concomitant]
     Route: 065
     Dates: start: 20120813
  10. LORAZEPAM [Concomitant]
     Route: 065
     Dates: start: 20120813
  11. PROBIOTIC ADVANTAGE [Concomitant]
     Route: 065
     Dates: start: 20120813
  12. PROCHLORPERAZINE [Concomitant]
     Route: 065
     Dates: start: 20120925
  13. ROSUVASTATIN CALCIUM [Concomitant]
     Route: 065
     Dates: start: 20120813
  14. SOLIFENACIN SUCCINATE [Concomitant]
     Route: 065
     Dates: start: 20120813
  15. TAMSULOSIN [Concomitant]
     Route: 065
     Dates: start: 20120813
  16. TOBRAMYCIN [Concomitant]
     Route: 065
     Dates: start: 20120828, end: 20120904
  17. VITAMIN D [Concomitant]
     Route: 065
     Dates: start: 20120813

REACTIONS (2)
  - Hypocalcaemia [Recovered/Resolved]
  - Hypomagnesaemia [Not Recovered/Not Resolved]
